FAERS Safety Report 10342274 (Version 1)
Quarter: 2014Q3

REPORT INFORMATION
  Report Type: Spontaneous
  Country: SE (occurrence: SE)
  Receive Date: 20140725
  Receipt Date: 20140725
  Transmission Date: 20150326
  Serious: Yes (Other)
  Sender: FDA-Public Use
  Company Number: SE-SHIRE-SE201404059

PATIENT
  Sex: Male

DRUGS (1)
  1. ELVANSE [Suspect]
     Active Substance: LISDEXAMFETAMINE DIMESYLATE
     Indication: ATTENTION DEFICIT/HYPERACTIVITY DISORDER
     Dosage: UNK, UNKNOWN
     Route: 048

REACTIONS (6)
  - Dermatitis exfoliative [Unknown]
  - Off label use [Unknown]
  - Cerebral infarction [Unknown]
  - Aggression [Unknown]
  - Anaphylactic reaction [Unknown]
  - Memory impairment [Unknown]
